FAERS Safety Report 9568846 (Version 1)
Quarter: 2013Q3

REPORT INFORMATION
  Report Type: Spontaneous
  Country: US (occurrence: US)
  Receive Date: 20130930
  Receipt Date: 20130930
  Transmission Date: 20140515
  Serious: No
  Sender: FDA-Public Use
  Company Number: US-AMGEN-USASP2013060990

PATIENT
  Age: 46 Year
  Sex: Female
  Weight: 83.9 kg

DRUGS (12)
  1. ENBREL [Suspect]
     Indication: PRODUCT USED FOR UNKNOWN INDICATION
     Dosage: 50 MG, QWK
     Route: 058
  2. PROTONIX [Concomitant]
     Dosage: 20 MG, UNK
     Route: 048
  3. PLAQUENIL                          /00072602/ [Concomitant]
     Dosage: 200 MG, UNK
     Route: 048
  4. CELEBREX [Concomitant]
     Dosage: 200 MG, UNK
     Route: 048
  5. PAXIL                              /00500401/ [Concomitant]
     Dosage: 10 MG, UNK
     Route: 048
  6. ZYRTEC [Concomitant]
     Dosage: 5 MG, UNK
     Route: 048
  7. TRICOR                             /00090101/ [Concomitant]
     Dosage: 145 MG, UNK
     Route: 048
  8. SIMVASTATIN [Concomitant]
     Dosage: 40 MG, UNK
     Route: 048
  9. WARFARIN [Concomitant]
     Dosage: 1 MG, UNK
     Route: 048
  10. METHOTREXATE [Concomitant]
     Dosage: 100/4 ML
     Route: 030
  11. CALCIUM +D                         /00944201/ [Concomitant]
     Route: 048
  12. FOLIC ACID [Concomitant]
     Dosage: 20 MG, UNK
     Route: 048

REACTIONS (1)
  - White blood cell count increased [Unknown]
